FAERS Safety Report 15920569 (Version 1)
Quarter: 2019Q1

REPORT INFORMATION
  Report Type: Spontaneous
  Country: SE (occurrence: SE)
  Receive Date: 20190205
  Receipt Date: 20190205
  Transmission Date: 20190417
  Serious: Yes (Other)
  Sender: FDA-Public Use
  Company Number: SE-TEVA-2019-SE-1008136

PATIENT
  Age: 59 Year
  Sex: Female
  Weight: 56.1 kg

DRUGS (4)
  1. CIPROFLOXACIN. [Suspect]
     Active Substance: CIPROFLOXACIN
     Route: 065
     Dates: start: 20190106, end: 20190108
  2. FOLIC ACID, ANHYDROUS [Concomitant]
  3. THERALEN 5 MG FILMDRAGERAD TABLETT [Concomitant]
     Dosage: 1 TABL. MORGON+LUNCH. 2 TABL. TILL NATTEN.
  4. PARACETAMOL APOFRI 500 MG BRUSTABLETT [Concomitant]
     Dosage: 4000 MILLIGRAM DAILY;

REACTIONS (8)
  - Paraesthesia [Unknown]
  - Mental disorder [Unknown]
  - Fear of death [Unknown]
  - Chest discomfort [Unknown]
  - Non-cardiac chest pain [Unknown]
  - Suicidal ideation [Unknown]
  - Dizziness [Unknown]
  - Anger [Unknown]

NARRATIVE: CASE EVENT DATE: 201901
